FAERS Safety Report 9264456 (Version 2)
Quarter: 2013Q2

REPORT INFORMATION
  Report Type: Report from Study
  Country: AU (occurrence: AU)
  Receive Date: 20130501
  Receipt Date: 20130506
  Transmission Date: 20140414
  Serious: Yes (Other)
  Sender: FDA-Public Use
  Company Number: AU-009507513-1304AUS017149

PATIENT
  Age: 58 Year
  Sex: Male

DRUGS (3)
  1. REBETOL [Suspect]
     Indication: CHRONIC HEPATITIS C
     Dosage: 800 MG DAILY
     Route: 048
     Dates: start: 20130121, end: 20130419
  2. LEXAPRO [Concomitant]
     Dosage: UNK
     Dates: start: 201209
  3. OLMESARTAN MEDOXOMIL [Concomitant]

REACTIONS (1)
  - Hepatic failure [Unknown]
